FAERS Safety Report 7802850-8 (Version None)
Quarter: 2011Q4

REPORT INFORMATION
  Report Type: 
  Country: None (occurrence: None)
  Receive Date: 20111007
  Receipt Date: 20111004
  Transmission Date: 20120403
  Serious: Yes (Hospitalization)
  Sender: FDA-Public Use
  Company Number: GB-AMGEN-GBRCT2011051082

PATIENT
  Age: 50 Year
  Sex: Male

DRUGS (21)
  1. CAPECITABINE [Concomitant]
     Indication: GASTROOESOPHAGEAL CANCER
     Dosage: UNK
     Dates: start: 20110629, end: 20110901
  2. EZETIMIBE [Concomitant]
     Indication: HYPERCHOLESTEROLAEMIA
     Dosage: 10 MG, UNK
  3. AVEENO [Concomitant]
     Indication: RASH
     Dosage: UNK UNK, PRN
  4. TEMAZEPAM [Concomitant]
     Indication: SEDATION
     Dosage: 40 MG, UNK
  5. E45 [Concomitant]
     Indication: PAIN IN EXTREMITY
     Dosage: UNK UNK, PRN
  6. ACETAMINOPHEN AND CODEINE PHOSPHATE [Concomitant]
     Indication: PAIN
     Dosage: UNK UNK, TID
  7. DIFFLAM [Concomitant]
     Indication: ORAL PAIN
     Dosage: UNK UNK, PRN
  8. E45 [Concomitant]
  9. EPIRUBICIN [Concomitant]
     Indication: GASTROOESOPHAGEAL CANCER
     Dosage: UNK
     Dates: start: 20110629
  10. OXALIPLATIN [Concomitant]
     Indication: GASTROOESOPHAGEAL CANCER
     Dosage: UNK
     Dates: start: 20110629
  11. ASPIRIN [Concomitant]
     Indication: ANTICOAGULANT THERAPY
     Dosage: 75 MG, QD
     Route: 048
  12. OLANZAPINE [Concomitant]
     Indication: ANTIDEPRESSANT THERAPY
     Dosage: 10 MG, UNK
  13. MIRTAZAPINE [Concomitant]
     Indication: ANTIDEPRESSANT THERAPY
     Dosage: 45 MG, QD
     Route: 048
  14. CYCLIZINE [Concomitant]
     Dosage: 50 MG, UNK
  15. IMODIUM [Concomitant]
     Indication: DIARRHOEA
     Dosage: 4 MG, UNK
  16. PANITUMUMAB [Suspect]
     Indication: GASTROOESOPHAGEAL CANCER
     Dosage: UNK
     Dates: start: 20110629
  17. LANSOPRAZOLE [Concomitant]
     Indication: GASTROOESOPHAGEAL REFLUX DISEASE
     Dosage: 30 MG, QD
     Route: 048
  18. GLANDOSANE [Concomitant]
     Indication: OROPHARYNGEAL PAIN
  19. FLOXACILLIN SODIUM [Concomitant]
     Dosage: 500 MG, QID
     Dates: start: 20110826
  20. GLANDOSANE [Concomitant]
     Indication: ORAL PAIN
     Dosage: UNK, PRN
  21. CLINDAMYCIN [Concomitant]
     Indication: RASH
     Dosage: UNK UNK, BID

REACTIONS (3)
  - NAUSEA [None]
  - INFECTION [None]
  - DIARRHOEA [None]
